FAERS Safety Report 6999874-X (Version None)
Quarter: 2010Q3

REPORT INFORMATION
  Report Type: 
  Country: None (occurrence: None)
  Receive Date: 20100920
  Receipt Date: 20070606
  Transmission Date: 20110219
  Serious: Yes (Other)
  Sender: FDA-Public Use
  Company Number: US-ASTRAZENECA-2006UW26382

PATIENT
  Age: 430 Month
  Sex: Male
  Weight: 84.4 kg

DRUGS (5)
  1. SEROQUEL [Suspect]
     Indication: MENTAL DISORDER
     Dosage: 200 MG- 800 MG
     Route: 048
     Dates: start: 20040108
  2. SEROQUEL [Suspect]
     Dosage: 300-500 MG
     Route: 048
     Dates: start: 20040901, end: 20060625
  3. VISTARIL [Concomitant]
     Indication: SLEEP DISORDER
     Dosage: STRENGTH 50 MG  DOSE 50 MG-100 MG DAILY
     Dates: start: 20040108
  4. TRILAFON [Concomitant]
     Dates: start: 20080120
  5. REMERON [Concomitant]
     Dates: start: 20080120

REACTIONS (3)
  - DIABETIC COMPLICATION [None]
  - TYPE 2 DIABETES MELLITUS [None]
  - VISION BLURRED [None]
